FAERS Safety Report 6495655-4 (Version None)
Quarter: 2009Q4

REPORT INFORMATION
  Report Type: 
  Country: None (occurrence: None)
  Receive Date: 20091214
  Receipt Date: 20090812
  Transmission Date: 20100525
  Serious: No
  Sender: FDA-Public Use
  Company Number: US-BRISTOL-MYERS SQUIBB COMPANY-14720619

PATIENT

DRUGS (7)
  1. ABILIFY [Suspect]
     Dosage: 1 DF = 10 UNIT NOS; HS INCREASE TO 15
     Route: 048
     Dates: start: 20090301, end: 20090727
  2. LITHIUM [Suspect]
     Dosage: 1 DF = 300 AM 600 HS
     Dates: start: 20090709, end: 20090727
  3. XANAX [Suspect]
     Dosage: 1/2 TID 09JUL09,24JUL09 1 DF = 1 UNIT NOS REDUCED TO 1/4 BID
     Dates: start: 20090709
  4. EFFEXOR [Suspect]
     Dosage: 1 DF = 75 UNIT NOS
     Dates: start: 20071101
  5. AMBIEN [Suspect]
     Dosage: 1 DF = 10 UNIT NOS
     Dates: start: 20090501
  6. KLONOPIN [Suspect]
     Dosage: 1 DOSAGE FORM = 1 UNITS NOT SPECIFIED
     Dates: start: 20080101
  7. MICARDIS HCT [Concomitant]
     Dosage: BEFORE OCT-2007
     Dates: start: 20070101

REACTIONS (4)
  - AKATHISIA [None]
  - COGWHEEL RIGIDITY [None]
  - SEDATION [None]
  - TREMOR [None]
